FAERS Safety Report 8570427 (Version 3)
Quarter: 2013Q1

REPORT INFORMATION
  Report Type: Spontaneous
  Country: JP (occurrence: JP)
  Receive Date: 20120521
  Receipt Date: 20130226
  Transmission Date: 20140127
  Serious: Yes (Other)
  Sender: FDA-Public Use
  Company Number: PHHY2012JP042375

PATIENT
  Age: 56 Year
  Sex: Female

DRUGS (2)
  1. ZOMETA [Suspect]
     Indication: METASTASES TO BONE
     Dosage: 4 MG, PER ADMINISTRATION
     Route: 041
     Dates: start: 20120430
  2. ZOMETA [Suspect]
     Dosage: 4 MG, PER ADMINISTRATION
     Route: 041
     Dates: end: 201205

REACTIONS (3)
  - Disseminated intravascular coagulation [Unknown]
  - Renal failure acute [Recovered/Resolved]
  - Urine output decreased [Unknown]
